FAERS Safety Report 6974901-4 (Version None)
Quarter: 2010Q3

REPORT INFORMATION
  Report Type: 
  Country: None (occurrence: None)
  Receive Date: 20100909
  Receipt Date: 20090105
  Transmission Date: 20110219
  Serious: No
  Sender: FDA-Public Use
  Company Number: US-WYE-H07539009

PATIENT
  Sex: Female
  Weight: 77.18 kg

DRUGS (8)
  1. PRISTIQ [Suspect]
     Indication: ANXIETY
     Route: 048
     Dates: start: 20081201
  2. ACIPHEX [Concomitant]
  3. ASPIRIN [Concomitant]
  4. XANAX [Concomitant]
  5. ZETIA [Concomitant]
  6. VICODIN [Concomitant]
  7. ESTRADIOL [Concomitant]
  8. WELLBUTRIN SR [Concomitant]

REACTIONS (8)
  - ANXIETY [None]
  - DIARRHOEA [None]
  - DIZZINESS [None]
  - HEADACHE [None]
  - HYPERHIDROSIS [None]
  - INSOMNIA [None]
  - NAUSEA [None]
  - TREMOR [None]
